FAERS Safety Report 16153533 (Version 4)
Quarter: 2019Q2

REPORT INFORMATION
  Report Type: Spontaneous
  Country: PL (occurrence: PL)
  Receive Date: 20190403
  Receipt Date: 20190625
  Transmission Date: 20190711
  Serious: Yes (Hospitalization, Other)
  Sender: FDA-Public Use
  Company Number: PL-AUROBINDO-AUR-APL-2019-017242

PATIENT

DRUGS (18)
  1. ACETYLSALICYLIC ACID [Suspect]
     Active Substance: ASPIRIN
     Indication: ACUTE MYOCARDIAL INFARCTION
  2. ZOFENOPRIL [Concomitant]
     Active Substance: ZOFENOPRIL
     Indication: ACUTE CORONARY SYNDROME
  3. PERAZINE [Suspect]
     Active Substance: PERAZINE
     Indication: PRODUCT USED FOR UNKNOWN INDICATION
     Dosage: 200 MILLIGRAM, DAILY
     Route: 065
  4. ZOLPIDEM [Interacting]
     Active Substance: ZOLPIDEM\ZOLPIDEM TARTRATE
     Indication: INSOMNIA
     Dosage: 10 MILLIGRAM, ONCE A DAY, AT BEDTIME
     Route: 065
  5. TICAGRELOR. [Interacting]
     Active Substance: TICAGRELOR
     Indication: ACUTE CORONARY SYNDROME
     Dosage: 180 MILLIGRAM, DAILY
     Route: 065
  6. TICAGRELOR. [Interacting]
     Active Substance: TICAGRELOR
     Indication: ACUTE MYOCARDIAL INFARCTION
     Dosage: 180 MILLIGRAM, DAILY
     Route: 048
  7. ACETYLSALICYLIC ACID [Suspect]
     Active Substance: ASPIRIN
     Indication: ACUTE CORONARY SYNDROME
     Dosage: 100 MILLIGRAM, DAILY
     Route: 065
  8. ZOLPIDEM [Suspect]
     Active Substance: ZOLPIDEM\ZOLPIDEM TARTRATE
     Indication: SLEEP DISORDER
     Dosage: 40 MILLIGRAM, ONCE A DAY
     Route: 065
  9. ACETYLSALICYLIC ACID [Suspect]
     Active Substance: ASPIRIN
     Indication: STENT PLACEMENT
  10. EPLERENONE. [Concomitant]
     Active Substance: EPLERENONE
     Indication: ACUTE CORONARY SYNDROME
     Dosage: 50 MILLIGRAM, DAILY
     Route: 065
  11. EPLERENONE. [Concomitant]
     Active Substance: EPLERENONE
     Indication: ACUTE MYOCARDIAL INFARCTION
  12. ZOFENOPRIL [Concomitant]
     Active Substance: ZOFENOPRIL
     Indication: STENT PLACEMENT
     Dosage: 8 MILLIGRAM, ONCE A DAY
     Route: 065
  13. HYDROXYZINE [Suspect]
     Active Substance: HYDROXYZINE HYDROCHLORIDE
     Indication: PRODUCT USED FOR UNKNOWN INDICATION
     Dosage: 50 MILLIGRAM, DAILY
     Route: 065
  14. ZOLPIDEM [Interacting]
     Active Substance: ZOLPIDEM\ZOLPIDEM TARTRATE
     Dosage: DOSE REDUCTION OF 1/4 EVERY 10-14 DAYS
     Route: 065
  15. MELATONIN [Interacting]
     Active Substance: MELATONIN
     Indication: INSOMNIA
     Dosage: 5 MILLIGRAM, ONCE A DAY AT 10PM
     Route: 065
  16. EPLERENONE. [Concomitant]
     Active Substance: EPLERENONE
     Indication: STENT PLACEMENT
  17. TICAGRELOR. [Interacting]
     Active Substance: TICAGRELOR
     Indication: STENT PLACEMENT
  18. ZOFENOPRIL [Concomitant]
     Active Substance: ZOFENOPRIL
     Indication: ACUTE MYOCARDIAL INFARCTION
     Dosage: 7.5 MILLIGRAM, DAILY
     Route: 065

REACTIONS (16)
  - Vascular stent thrombosis [Unknown]
  - Drug abuse [Unknown]
  - Sleep disorder [Unknown]
  - Overdose [Unknown]
  - Intentional product misuse [Unknown]
  - Hypoaesthesia [Unknown]
  - Memory impairment [Recovered/Resolved]
  - Angina pectoris [Unknown]
  - Tachyphylaxis [Unknown]
  - Chest pain [Unknown]
  - Therapeutic product effect decreased [Unknown]
  - Drug interaction [Recovered/Resolved]
  - Intentional product use issue [Unknown]
  - Attention deficit/hyperactivity disorder [Unknown]
  - Disturbance in attention [Recovered/Resolved]
  - Incorrect dose administered [Unknown]
